FAERS Safety Report 9562550 (Version 2)
Quarter: 2014Q2

REPORT INFORMATION
  Report Type: Report from Study
  Country: NL (occurrence: NL)
  Receive Date: 20130927
  Receipt Date: 20140512
  Transmission Date: 20141212
  Serious: Yes (Death)
  Sender: FDA-Public Use
  Company Number: NL-SANOFI-AVENTIS-2013SA095207

PATIENT
  Age: 63 Year
  Sex: Male

DRUGS (7)
  1. CABAZITAXEL [Suspect]
     Indication: HORMONE-REFRACTORY PROSTATE CANCER
     Route: 042
     Dates: start: 20130910, end: 20130910
  2. BUDESONIDE [Suspect]
     Indication: HORMONE-REFRACTORY PROSTATE CANCER
     Route: 048
     Dates: start: 20130908, end: 20130908
  3. BUDESONIDE [Suspect]
     Indication: HORMONE-REFRACTORY PROSTATE CANCER
     Route: 048
     Dates: start: 20130919, end: 20130919
  4. PREDNISONE [Suspect]
     Indication: HORMONE-REFRACTORY PROSTATE CANCER
     Route: 065
  5. IRON [Concomitant]
  6. DEVARON [Concomitant]
     Dosage: DAILY DOSE: 1X400E
  7. LUCRIN [Concomitant]

REACTIONS (2)
  - Cardiac disorder [Fatal]
  - Death [Fatal]
